FAERS Safety Report 5203086-X (Version None)
Quarter: 2006Q4

REPORT INFORMATION
  Report Type: 
  Country: None (occurrence: None)
  Receive Date: 20061016
  Receipt Date: 20051020
  Transmission Date: 20070319
  Serious: Yes (Other)
  Sender: FDA-Public Use
  Company Number: 2005145575

PATIENT
  Sex: Male

DRUGS (1)
  1. NEURONTIN [Suspect]
     Indication: NECK PAIN
     Dates: start: 20050511

REACTIONS (5)
  - DEAFNESS [None]
  - HYPOAESTHESIA [None]
  - MICTURITION DISORDER [None]
  - MIGRAINE [None]
  - TONGUE DISORDER [None]
